FAERS Safety Report 9148813 (Version 2)
Quarter: 2013Q1

REPORT INFORMATION
  Report Type: Spontaneous
  Country: TR (occurrence: TR)
  Receive Date: 20130308
  Receipt Date: 20130319
  Transmission Date: 20140127
  Serious: Yes (Other)
  Sender: FDA-Public Use
  Company Number: PHHY2012TR049821

PATIENT
  Age: 83 Year
  Sex: Female

DRUGS (2)
  1. RIVASTIGMINE [Suspect]
     Indication: DEMENTIA ALZHEIMER^S TYPE
     Dosage: UNK UKN, UNK
  2. NIFEDIPINE [Concomitant]
     Dosage: 30 MG, PER DAY

REACTIONS (8)
  - Left ventricular hypertrophy [Recovered/Resolved]
  - Mitral valve incompetence [Recovered/Resolved]
  - Atrioventricular block second degree [Recovered/Resolved]
  - Bradyarrhythmia [Recovered/Resolved]
  - Dizziness [Recovered/Resolved]
  - Dyspnoea [Recovered/Resolved]
  - Bradycardia [Recovered/Resolved]
  - Malaise [Recovered/Resolved]
